FAERS Safety Report 5132656-2 (Version None)
Quarter: 2006Q4

REPORT INFORMATION
  Report Type: 
  Country: None (occurrence: None)
  Receive Date: 20061023
  Receipt Date: 20061016
  Transmission Date: 20070319
  Serious: Yes (Hospitalization)
  Sender: FDA-Public Use
  Company Number: NLWYE238216OCT06

PATIENT
  Age: 58 Year
  Sex: Female

DRUGS (4)
  1. ENBREL [Suspect]
     Indication: PSORIASIS
     Dates: start: 20041001, end: 20060901
  2. SEREVENT [Concomitant]
  3. TRANXENE [Concomitant]
     Dosage: USED WHEN NECESSARY
  4. PAROXETINE HCL [Concomitant]

REACTIONS (3)
  - CORONARY ARTERY OCCLUSION [None]
  - HEART RATE INCREASED [None]
  - SKIN BACTERIAL INFECTION [None]
